FAERS Safety Report 5289360-X (Version None)
Quarter: 2007Q2

REPORT INFORMATION
  Report Type: 
  Country: None (occurrence: None)
  Receive Date: 20070406
  Receipt Date: 20070326
  Transmission Date: 20071010
  Serious: Yes (Hospitalization)
  Sender: FDA-Public Use
  Company Number: PHRM2007FR01132

PATIENT
  Age: 61 Year
  Sex: Female
  Weight: 67 kg

DRUGS (5)
  1. AREDIA [Suspect]
     Indication: METASTASES TO BONE
     Dosage: 90 MG, QD
     Route: 042
     Dates: start: 20031013, end: 20061001
  2. CYCLOPHOSPHAMIDE + DOXORUBICIN + 5-FU [Concomitant]
     Indication: BREAST CANCER METASTATIC
     Dosage: 10 COURSES
     Dates: start: 20030601, end: 20040201
  3. XELODA [Concomitant]
     Indication: BREAST CANCER METASTATIC
     Dosage: 22 COURSES
     Dates: start: 20040201, end: 20050601
  4. NAVELBINE [Concomitant]
     Indication: BREAST CANCER METASTATIC
     Dosage: 8 COURSES
     Route: 048
     Dates: start: 20050101, end: 20060101
  5. TAXOL [Concomitant]
     Indication: BREAST CANCER METASTATIC
     Dates: start: 20060201, end: 20061101

REACTIONS (5)
  - DENTAL CARE [None]
  - OSTEONECROSIS [None]
  - PERIODONTAL DISEASE [None]
  - TOOTH EXTRACTION [None]
  - TOOTHACHE [None]
